FAERS Safety Report 7443327-1 (Version None)
Quarter: 2011Q2

REPORT INFORMATION
  Report Type: 
  Country: None (occurrence: None)
  Receive Date: 20110428
  Receipt Date: 20110414
  Transmission Date: 20111010
  Serious: Yes (Hospitalization)
  Sender: FDA-Public Use
  Company Number: CA-JNJFOC-20110407086

PATIENT
  Sex: Male
  Weight: 104 kg

DRUGS (4)
  1. REMICADE [Suspect]
     Indication: CROHN'S DISEASE
     Route: 042
  2. CHOLESTYRAMINE [Concomitant]
     Route: 065
  3. ZANTAC [Concomitant]
     Route: 065
  4. CRYSTALLINE VIT B12 INJ [Concomitant]
     Route: 065

REACTIONS (2)
  - ABDOMINAL HERNIA [None]
  - POSTOPERATIVE ILEUS [None]
